FAERS Safety Report 6818603-3 (Version None)
Quarter: 2010Q3

REPORT INFORMATION
  Report Type: 
  Country: None (occurrence: None)
  Receive Date: 20100706
  Receipt Date: 20090410
  Transmission Date: 20110219
  Serious: No
  Sender: FDA-Public Use
  Company Number: US-PFIZER INC-2009176022

PATIENT
  Sex: Female

DRUGS (3)
  1. AZITHROMYCIN [Suspect]
     Indication: SINUSITIS
     Dosage: 500 MG, 1X/DAY
     Route: 048
     Dates: start: 20090223, end: 20090223
  2. AZITHROMYCIN [Suspect]
     Dosage: 250 MG, 1X/DAY
     Dates: start: 20090224, end: 20090224
  3. PETIBELLE FILMTABLETTEN [Concomitant]
     Dosage: UNK

REACTIONS (1)
  - ABDOMINAL PAIN UPPER [None]
